FAERS Safety Report 20437815 (Version 1)
Quarter: 2022Q1

REPORT INFORMATION
  Report Type: Spontaneous
  Country: US (occurrence: US)
  Receive Date: 20220207
  Receipt Date: 20220207
  Transmission Date: 20220423
  Serious: Yes (Hospitalization)
  Sender: FDA-Public Use
  Company Number: US-ELI_LILLY_AND_COMPANY-US202201011317

PATIENT
  Sex: Female

DRUGS (2)
  1. HUMALOG [Suspect]
     Active Substance: INSULIN LISPRO
     Indication: Product used for unknown indication
     Dosage: UNK UNK, UNKNOWN
     Route: 058
     Dates: start: 202004, end: 202112
  2. LEVEMIR [Concomitant]
     Active Substance: INSULIN DETEMIR
     Indication: Product used for unknown indication
     Dosage: UNK UNK, UNKNOWN

REACTIONS (7)
  - Diabetic ketoacidosis [Unknown]
  - Depressed level of consciousness [Unknown]
  - Blood glucose increased [Unknown]
  - Diabetic ketoacidosis [Recovering/Resolving]
  - Diabetic ketoacidosis [Recovering/Resolving]
  - Limb injury [Recovering/Resolving]
  - Infection [Recovering/Resolving]

NARRATIVE: CASE EVENT DATE: 20200101
